FAERS Safety Report 6368354-7 (Version None)
Quarter: 2009Q3

REPORT INFORMATION
  Report Type: 
  Country: None (occurrence: None)
  Receive Date: 20090916
  Receipt Date: 20090902
  Transmission Date: 20100115
  Serious: Yes (Hospitalization)
  Sender: FDA-Public Use
  Company Number: 8051446

PATIENT
  Age: 42 Year
  Sex: Female

DRUGS (1)
  1. CIMZIA [Suspect]
     Dosage: SC
     Route: 058
     Dates: start: 20090527

REACTIONS (1)
  - NEPHROLITHIASIS [None]
